FAERS Safety Report 16173370 (Version 1)
Quarter: 2019Q2

REPORT INFORMATION
  Report Type: Spontaneous
  Country: US (occurrence: US)
  Receive Date: 20190409
  Receipt Date: 20190409
  Transmission Date: 20190711
  Serious: Yes (Hospitalization, Other)
  Sender: FDA-Public Use
  Company Number: US-BAXTER-2019BAX006635

PATIENT
  Age: 21 Year
  Sex: Female

DRUGS (21)
  1. IFOSFAMIDE FOR INJECTION [Suspect]
     Active Substance: IFOSFAMIDE
     Indication: OSTEOSARCOMA
     Dosage: 4 TIMES THE PLANNED DOSE OF IFOSFAMIDE 24 G/M2 GIVEN BY CONTINUOUS INTRAVENOUS INFUSION OVER 4D BEGU
     Route: 041
  2. DOXORUBICIN [Suspect]
     Active Substance: DOXORUBICIN
     Indication: OSTEOSARCOMA
     Dosage: 5 TIMES THE PLANNED DOSE OF 300MG/M2 OVER 5D BEGUN ON DAY 1
     Route: 041
  3. MESNA. [Concomitant]
     Active Substance: MESNA
     Indication: PROPHYLAXIS
     Route: 065
  4. NYSTATIN. [Concomitant]
     Active Substance: NYSTATIN
     Indication: PRODUCT USED FOR UNKNOWN INDICATION
     Route: 065
  5. RED BLOOD CELLS [Concomitant]
     Active Substance: HUMAN RED BLOOD CELL
     Indication: TRANSFUSION
     Route: 042
  6. METRONIDAZOLE. [Concomitant]
     Active Substance: METRONIDAZOLE
     Indication: FEBRILE NEUTROPENIA
     Dosage: ON DAY 8
     Route: 065
  7. AZTREONAM. [Concomitant]
     Active Substance: AZTREONAM
     Indication: FEBRILE NEUTROPENIA
     Dosage: ON DAY 8
     Route: 065
  8. DIMETHYL SULFOXIDE. [Concomitant]
     Active Substance: DIMETHYL SULFOXIDE
     Indication: OVERDOSE
     Dosage: ON DAYS 6 AND 7
     Route: 048
  9. PHENOBARBITAL. [Concomitant]
     Active Substance: PHENOBARBITAL
     Indication: OVERDOSE
     Dosage: FROM DAY 7 TO DAY 11
     Route: 042
  10. G-CSF [Concomitant]
     Active Substance: GRANULOCYTE COLONY-STIMULATING FACTOR NOS
     Indication: BONE MARROW DISORDER
     Dosage: OVER 30 MINUTES FROM DAY 8 TO DAY 25.
     Route: 042
  11. CIMETIDINE [Concomitant]
     Active Substance: CIMETIDINE
     Indication: GASTRIC DISORDER
     Dosage: BEGUN ON DAY 8
     Route: 042
  12. ACICLOVIR [Concomitant]
     Active Substance: ACYCLOVIR
     Indication: PROPHYLAXIS
     Dosage: ON DAY 8
     Route: 065
  13. IFOSFAMIDE FOR INJECTION [Suspect]
     Active Substance: IFOSFAMIDE
     Indication: NEOPLASM MALIGNANT
     Dosage: A CYCLE OF  IFOSFAMIDE 1.5G/M2/D?5D
     Route: 065
  14. GM-CSF [Concomitant]
     Active Substance: GRANULOCYTE-MACROPHAGE COLONY-STIMULATING FACTOR
     Indication: BONE MARROW DISORDER
     Dosage: OVER 4 TO 6 HOURS WAS GIVEN ON DAY 7 FOR 2 DOSES.
     Route: 042
  15. DACARBAZINE. [Suspect]
     Active Substance: DACARBAZINE
     Indication: OSTEOSARCOMA
     Dosage: BY CONTINUOUS INTRAVENOUS INFUSION OVER 5D BEGUN ON DAY 1
     Route: 041
  16. VANCOMYCIN [Concomitant]
     Active Substance: VANCOMYCIN
     Indication: FEBRILE NEUTROPENIA
     Dosage: ON DAY 8
     Route: 065
  17. CEFTAZIDIME. [Concomitant]
     Active Substance: CEFTAZIDIME
     Indication: FEBRILE NEUTROPENIA
     Dosage: ON DAY 8
     Route: 065
  18. MESNA. [Concomitant]
     Active Substance: MESNA
     Indication: PRODUCT USED FOR UNKNOWN INDICATION
     Dosage: GIVEN BY CONTINUOUS INTRAVENOUS INFUSION OVER 5D
     Route: 041
  19. DIMETHYL SULFOXIDE. [Concomitant]
     Active Substance: DIMETHYL SULFOXIDE
     Dosage: FROM DAYS 8 TO 17
     Route: 042
  20. MORPHINE [Concomitant]
     Active Substance: MORPHINE
     Indication: PAIN MANAGEMENT
     Route: 065
  21. PLATELETS [Concomitant]
     Active Substance: HUMAN PLATELET, ALLOGENIC
     Indication: TRANSFUSION
     Route: 042

REACTIONS (11)
  - Febrile neutropenia [Unknown]
  - Diarrhoea [Unknown]
  - Nausea [Unknown]
  - Overdose [Unknown]
  - Haematemesis [Unknown]
  - Oral candidiasis [Unknown]
  - Skin exfoliation [Unknown]
  - Drug exposure before pregnancy [Recovered/Resolved]
  - Abdominal pain [Unknown]
  - Hypokalaemia [Unknown]
  - Stomatitis [Unknown]
